FAERS Safety Report 19569010 (Version 2)
Quarter: 2021Q3

REPORT INFORMATION
  Report Type: Report from Study
  Country: US (occurrence: US)
  Receive Date: 20210716
  Receipt Date: 20210812
  Transmission Date: 20211014
  Serious: Yes (Hospitalization, Other)
  Sender: FDA-Public Use
  Company Number: US-B.I. PHARMACEUTICALS,INC./RIDGEFIELD-2020-BI-049995

PATIENT
  Age: 77 Year
  Sex: Male

DRUGS (4)
  1. OFEV [Suspect]
     Active Substance: NINTEDANIB
     Route: 065
     Dates: start: 20210808
  2. OFEV [Suspect]
     Active Substance: NINTEDANIB
     Indication: IDIOPATHIC PULMONARY FIBROSIS
     Dosage: 150MG BID
     Route: 048
     Dates: start: 20200525, end: 20200803
  3. OFEV [Suspect]
     Active Substance: NINTEDANIB
     Dosage: 2 ; DAY
     Route: 048
     Dates: start: 20200804
  4. OFEV [Suspect]
     Active Substance: NINTEDANIB
     Dosage: 150MG EVERY 12 HOURS
     Route: 048
     Dates: start: 20201102

REACTIONS (40)
  - Dizziness [Not Recovered/Not Resolved]
  - Oxygen consumption increased [Unknown]
  - Depression [Unknown]
  - Chest pain [Recovering/Resolving]
  - Diarrhoea [Not Recovered/Not Resolved]
  - Blood potassium decreased [Not Recovered/Not Resolved]
  - Asthenia [Not Recovered/Not Resolved]
  - Dyspnoea [Recovering/Resolving]
  - Reading disorder [Not Recovered/Not Resolved]
  - Dry mouth [Not Recovered/Not Resolved]
  - Food aversion [Not Recovered/Not Resolved]
  - Chest discomfort [Unknown]
  - Disturbance in attention [Not Recovered/Not Resolved]
  - Malnutrition [Not Recovered/Not Resolved]
  - Nervous system disorder [Not Recovered/Not Resolved]
  - Sleep disorder [Not Recovered/Not Resolved]
  - Pyrexia [Recovered/Resolved]
  - Sensation of foreign body [Recovering/Resolving]
  - Gastrointestinal haemorrhage [Unknown]
  - Insomnia [Unknown]
  - Throat tightness [Recovering/Resolving]
  - Anxiety [Not Recovered/Not Resolved]
  - Movement disorder [Not Recovered/Not Resolved]
  - Increased viscosity of bronchial secretion [Not Recovered/Not Resolved]
  - Balance disorder [Not Recovered/Not Resolved]
  - Thinking abnormal [Not Recovered/Not Resolved]
  - Fatigue [Not Recovered/Not Resolved]
  - Retching [Not Recovered/Not Resolved]
  - Gastrointestinal disorder [Not Recovered/Not Resolved]
  - Nasopharyngitis [Not Recovered/Not Resolved]
  - Visual impairment [Unknown]
  - Nausea [Not Recovered/Not Resolved]
  - Diarrhoea [Unknown]
  - Productive cough [Not Recovered/Not Resolved]
  - Idiopathic pulmonary fibrosis [Recovering/Resolving]
  - Nerve compression [Unknown]
  - Diplopia [Not Recovered/Not Resolved]
  - Dehydration [Not Recovered/Not Resolved]
  - Decreased appetite [Not Recovered/Not Resolved]
  - Nasal congestion [Unknown]

NARRATIVE: CASE EVENT DATE: 202007
